FAERS Safety Report 7938574-6 (Version None)
Quarter: 2011Q4

REPORT INFORMATION
  Report Type: 
  Country: None (occurrence: None)
  Receive Date: 20111123
  Receipt Date: 20111114
  Transmission Date: 20120403
  Serious: Yes (Other)
  Sender: FDA-Public Use
  Company Number: TW-ROCHE-1012646

PATIENT
  Age: 36 Year
  Sex: Male

DRUGS (3)
  1. STEROID (NAME UNKNOWN) [Suspect]
     Indication: PROPHYLAXIS AGAINST TRANSPLANT REJECTION
  2. TACROLIMUS [Suspect]
     Indication: PROPHYLAXIS AGAINST TRANSPLANT REJECTION
  3. MYCOPHENOLATE MOFETIL [Suspect]
     Indication: PROPHYLAXIS AGAINST TRANSPLANT REJECTION

REACTIONS (5)
  - POST PROCEDURAL COMPLICATION [None]
  - ANTIBODY TEST ABNORMAL [None]
  - NEUROTOXICITY [None]
  - DELIRIUM [None]
  - KIDNEY TRANSPLANT REJECTION [None]
